FAERS Safety Report 4293855-5 (Version None)
Quarter: 2004Q1

REPORT INFORMATION
  Report Type: 
  Country: None (occurrence: None)
  Receive Date: 20040212
  Receipt Date: 20040109
  Transmission Date: 20041129
  Serious: Yes (Other)
  Sender: FDA-Public Use
  Company Number: FR-BRISTOL-MYERS SQUIBB COMPANY-12473641

PATIENT
  Age: 75 Year
  Sex: Male

DRUGS (4)
  1. VASTEN TABS 20 MG [Suspect]
     Indication: HYPERCHOLESTEROLAEMIA
     Route: 048
     Dates: start: 20030201, end: 20040106
  2. ASPIRIN [Concomitant]
     Route: 048
     Dates: end: 20040106
  3. MONICOR [Concomitant]
     Route: 048
  4. SOTALOL HCL [Concomitant]
     Route: 048

REACTIONS (4)
  - HAEMATOMA [None]
  - MUSCLE CRAMP [None]
  - MUSCLE INJURY [None]
  - MYALGIA [None]
